FAERS Safety Report 24330939 (Version 1)
Quarter: 2024Q3

REPORT INFORMATION
  Report Type: Spontaneous
  Country: SE (occurrence: SE)
  Receive Date: 20240918
  Receipt Date: 20240918
  Transmission Date: 20241017
  Serious: Yes (Life-Threatening, Hospitalization)
  Sender: GE HEALTHCARE
  Company Number: None

PATIENT
  Age: 60 Year
  Sex: Female
  Weight: 71 kg

DRUGS (1)
  1. OMNIPAQUE [Suspect]
     Active Substance: IOHEXOL
     Indication: Computerised tomogram
     Dosage: 90 ML, TOTAL
     Route: 042
     Dates: start: 20240827, end: 20240827

REACTIONS (2)
  - Tryptase increased [Unknown]
  - Anaphylactic reaction [Unknown]

NARRATIVE: CASE EVENT DATE: 20240801
